FAERS Safety Report 7919342-8 (Version None)
Quarter: 2011Q4

REPORT INFORMATION
  Report Type: 
  Country: None (occurrence: None)
  Receive Date: 20111117
  Receipt Date: 20111107
  Transmission Date: 20120403
  Serious: Yes (Other)
  Sender: FDA-Public Use
  Company Number: GB-JNJFOC-20111009821

PATIENT
  Sex: Female
  Weight: 68 kg

DRUGS (6)
  1. LEVOTHYROXINE SODIUM [Concomitant]
     Route: 065
     Dates: start: 20111014
  2. LEVOTHYROXINE SODIUM [Concomitant]
     Indication: HYPERTHYROIDISM
     Route: 065
     Dates: start: 20110501, end: 20111001
  3. VENTOLIN [Concomitant]
     Indication: PRODUCT USED FOR UNKNOWN INDICATION
     Route: 065
     Dates: start: 20050101
  4. TOPAMAX [Suspect]
     Indication: MIGRAINE PROPHYLAXIS
     Dosage: FOR LAST 2-3 MONTHS
     Route: 048
  5. TOPAMAX [Suspect]
     Route: 048
     Dates: start: 20110530
  6. LEVOTHYROXINE SODIUM [Concomitant]
     Route: 065
     Dates: start: 20090101, end: 20110501

REACTIONS (3)
  - PROTEIN URINE PRESENT [None]
  - WEIGHT DECREASED [None]
  - EPSTEIN-BARR VIRUS ANTIBODY POSITIVE [None]
